FAERS Safety Report 6255763-X (Version None)
Quarter: 2009Q3

REPORT INFORMATION
  Report Type: 
  Country: None (occurrence: None)
  Receive Date: 20090701
  Receipt Date: 20090624
  Transmission Date: 20100115
  Serious: Yes (Disabling)
  Sender: FDA-Public Use
  Company Number: THQ2008A03251

PATIENT
  Age: 62 Year
  Sex: Male

DRUGS (6)
  1. ACTOS [Suspect]
     Indication: DIABETES MELLITUS
     Dosage: 30 MG (30 MG, 1 IN 1 D), PER ORAL
     Route: 048
     Dates: start: 20080415, end: 20080101
  2. ACTOS [Suspect]
     Indication: DIABETES MELLITUS
     Dosage: 30 MG (30 MG, 1 IN 1 D), PER ORAL
     Route: 048
     Dates: start: 20081013, end: 20081127
  3. METFORMIN HCL [Concomitant]
  4. SIMVASTATIN [Concomitant]
  5. VALSARTAN AND HYDROCHLOROTHIAZIDE [Concomitant]
  6. GLIMEPIRIDE [Concomitant]

REACTIONS (2)
  - FACE OEDEMA [None]
  - PERIORBITAL OEDEMA [None]
